FAERS Safety Report 9867795 (Version 1)
Quarter: 2014Q1

REPORT INFORMATION
  Report Type: Spontaneous
  Country: PL (occurrence: PL)
  Receive Date: 20140204
  Receipt Date: 20140204
  Transmission Date: 20141002
  Serious: Yes (Other)
  Sender: FDA-Public Use
  Company Number: PHHY2014PL010429

PATIENT
  Age: 71 Year
  Sex: Female
  Weight: 72 kg

DRUGS (6)
  1. ORTANOL [Suspect]
     Indication: DYSPEPSIA
     Dosage: 20 MG, QD
     Route: 048
     Dates: start: 20140119, end: 20140122
  2. BETO ZK [Concomitant]
     Dosage: 50 MG, QD
     Route: 048
     Dates: start: 2011
  3. PRESARTAN [Concomitant]
     Route: 048
     Dates: start: 2011
  4. AMLOZEK [Concomitant]
     Route: 048
     Dates: start: 2011
  5. POLOCARD [Concomitant]
     Route: 048
     Dates: start: 2011
  6. SIMVASTEROL [Concomitant]
     Route: 048
     Dates: start: 2011

REACTIONS (3)
  - Suicidal ideation [Recovered/Resolved]
  - Sleep disorder [Recovered/Resolved]
  - Visual impairment [Recovered/Resolved]
